FAERS Safety Report 7818390-6 (Version None)
Quarter: 2011Q4

REPORT INFORMATION
  Report Type: 
  Country: None (occurrence: None)
  Receive Date: 20111017
  Receipt Date: 20111006
  Transmission Date: 20120403
  Serious: Yes (Other)
  Sender: FDA-Public Use
  Company Number: GB-ASTRAZENECA-2011SE27629

PATIENT
  Age: 23262 Day
  Sex: Female
  Weight: 48.2 kg

DRUGS (7)
  1. IRESSA [Suspect]
     Dosage: 250 MG MONDAY TILL SATURDAY, ON SANDAYS SHE MISSING HER DOSE
     Route: 048
  2. IRESSA [Suspect]
     Route: 048
  3. CALCIUM CARBONATE [Concomitant]
     Indication: ARTHROPATHY
     Route: 048
  4. LEVOTHYROXINE SODIUM [Concomitant]
     Route: 048
  5. LANSOPRAZOLE [Concomitant]
     Route: 048
  6. IRESSA [Suspect]
     Indication: NON-SMALL CELL LUNG CANCER
     Route: 048
     Dates: start: 20090801, end: 20110601
  7. PREDNISOLONE [Concomitant]
     Indication: ARTHROPATHY
     Route: 048

REACTIONS (7)
  - RASH [None]
  - PYODERMA [None]
  - ALOPECIA SCARRING [None]
  - DIARRHOEA [None]
  - RASH PUSTULAR [None]
  - SKIN DISORDER [None]
  - LOCALISED INFECTION [None]
